FAERS Safety Report 11109347 (Version 3)
Quarter: 2015Q2

REPORT INFORMATION
  Report Type: Spontaneous
  Country: IT (occurrence: IT)
  Receive Date: 20150513
  Receipt Date: 20150527
  Transmission Date: 20150821
  Serious: Yes (Hospitalization)
  Sender: FDA-Public Use
  Company Number: IT-TEVA-561818ACC

PATIENT
  Age: 65 Year
  Sex: Female
  Weight: 54 kg

DRUGS (29)
  1. TAXOL [Suspect]
     Active Substance: PACLITAXEL
     Dosage: SIXTH CYCLE
     Dates: start: 20141010
  2. AVASTIN [Suspect]
     Active Substance: BEVACIZUMAB
     Dosage: FIRST AVASTIN MAINTENANCE WAS 820 MG
     Dates: start: 20141031
  3. AVASTIN [Suspect]
     Active Substance: BEVACIZUMAB
     Dosage: THIRD AVASTIN MAINTENANCE WAS 820 MG D1/Q 21 DAYS
     Dates: start: 20141212
  4. NEULASTA [Suspect]
     Active Substance: PEGFILGRASTIM
     Dates: start: 20140808
  5. TRIMETON - 10 MG/1 ML SOLUZIONE INIETTABILE [Concomitant]
     Indication: PRODUCT USED FOR UNKNOWN INDICATION
     Dosage: 1 DF
     Route: 042
  6. AVASTIN [Suspect]
     Active Substance: BEVACIZUMAB
     Dosage: FOURTH AVASTIN MAINTENANCE WAS 820 MG D1/Q 21 DAYS
     Dates: start: 20150102
  7. AVASTIN [Suspect]
     Active Substance: BEVACIZUMAB
     Dosage: FIFTH INTRAVENOUS AVASTIN MAINTENANCE WAS 820 MG
     Route: 042
     Dates: start: 20150123
  8. CARBOPLATIN. [Suspect]
     Active Substance: CARBOPLATIN
     Indication: OVARIAN CANCER
     Dosage: 480 MILLIGRAM DAILY; 480 MG DAILY
     Dates: start: 20140613, end: 20141010
  9. CARBOPLATIN. [Suspect]
     Active Substance: CARBOPLATIN
     Dosage: 480 MG, FOURTH CYCLE
     Dates: start: 20140829
  10. NEULASTA [Suspect]
     Active Substance: PEGFILGRASTIM
     Dosage: SIXTH CYCLE
     Dates: start: 20141010
  11. AVASTIN [Suspect]
     Active Substance: BEVACIZUMAB
     Dosage: 820 MG, SECOND CYCLE
  12. AVASTIN [Suspect]
     Active Substance: BEVACIZUMAB
     Dosage: 820 MG, FOURTH CYCLE
     Route: 042
     Dates: start: 20140829
  13. AVASTIN [Suspect]
     Active Substance: BEVACIZUMAB
     Dosage: SIXTH INTRAVENOUS AVASTIN MAINTENANCE WAS 820 MG
     Route: 042
     Dates: start: 20150213
  14. CARBOPLATIN. [Suspect]
     Active Substance: CARBOPLATIN
     Dosage: 480 MG, SECOND CYCLE
  15. CARBOPLATIN. [Suspect]
     Active Substance: CARBOPLATIN
     Dosage: SIXTH CYCLE
     Dates: start: 20141010
  16. TAXOL [Suspect]
     Active Substance: PACLITAXEL
     Dosage: 260 MG, SECOND CYCLE
  17. TAXOL [Suspect]
     Active Substance: PACLITAXEL
     Dosage: FIFTH CYCLE
     Dates: start: 20140919
  18. PANTORC [Concomitant]
     Active Substance: PANTOPRAZOLE SODIUM
     Indication: PRODUCT USED FOR UNKNOWN INDICATION
     Dosage: 1 DF
     Route: 042
  19. TAXOL [Suspect]
     Active Substance: PACLITAXEL
     Indication: OVARIAN CANCER
     Dosage: 260 MILLIGRAM DAILY; 260 MG DAILY
     Dates: start: 20140613, end: 20141010
  20. TAXOL [Suspect]
     Active Substance: PACLITAXEL
     Dosage: 260 MG
     Route: 042
     Dates: start: 20140808
  21. AVASTIN [Suspect]
     Active Substance: BEVACIZUMAB
     Dosage: SECOND AVASTIN MAINTENANCE WAS 820 MG
     Dates: start: 20141121
  22. CARBOPLATIN. [Suspect]
     Active Substance: CARBOPLATIN
     Dosage: 480 MG
     Route: 042
  23. CARBOPLATIN. [Suspect]
     Active Substance: CARBOPLATIN
     Dosage: FIFTH CYCLE
     Dates: start: 20140919
  24. TAXOL [Suspect]
     Active Substance: PACLITAXEL
     Dosage: 260 MG, FOURTH CYCLE
     Route: 042
     Dates: start: 20140829
  25. AVASTIN [Suspect]
     Active Substance: BEVACIZUMAB
     Dosage: SIXTH CYCLE
     Dates: start: 20141010
  26. NEULASTA [Suspect]
     Active Substance: PEGFILGRASTIM
     Dosage: FOURTH CYCLE
     Dates: start: 20140829
  27. AVASTIN [Suspect]
     Active Substance: BEVACIZUMAB
     Indication: OVARIAN CANCER
     Dosage: 820 MILLIGRAM DAILY; 820 MG DAILY
     Dates: start: 20140613, end: 20150307
  28. AVASTIN [Suspect]
     Active Substance: BEVACIZUMAB
     Dosage: FIFTH CYCLE
     Dates: start: 20140919
  29. DEXAMETHASONE DISODIUM PHOSPHATE [Concomitant]
     Active Substance: DEXAMETHASONE SODIUM PHOSPHATE
     Indication: PRODUCT USED FOR UNKNOWN INDICATION
     Dosage: 20 MG
     Route: 042

REACTIONS (5)
  - Monocyte count increased [Unknown]
  - Aneurysm [Unknown]
  - Blast cells present [Unknown]
  - Leukocytosis [Unknown]
  - Neutropenia [Unknown]

NARRATIVE: CASE EVENT DATE: 20140718
